FAERS Safety Report 4655111-2 (Version None)
Quarter: 2005Q2

REPORT INFORMATION
  Report Type: 
  Country: None (occurrence: None)
  Receive Date: 20050506
  Receipt Date: 20040601
  Transmission Date: 20051028
  Serious: Yes (Death)
  Sender: FDA-Public Use
  Company Number: FR-JNJFOC-20040502798

PATIENT
  Sex: Female

DRUGS (6)
  1. PROPULSID [Suspect]
     Route: 049
     Dates: start: 20031208, end: 20031220
  2. CELESTENE [Concomitant]
     Dates: end: 20031221
  3. AUGMENTIN '125' [Concomitant]
     Dates: start: 20031210, end: 20031218
  4. AUGMENTIN '125' [Concomitant]
     Dates: start: 20031210, end: 20031218
  5. ILOMEDINE [Concomitant]
     Dates: start: 20031212, end: 20031221
  6. CLAMOXYL [Concomitant]

REACTIONS (4)
  - BRONCHOPULMONARY DYSPLASIA [None]
  - PULMONARY HYPERTENSION [None]
  - RESPIRATORY TRACT INFECTION [None]
  - URINARY TRACT INFECTION [None]
